FAERS Safety Report 24332452 (Version 1)
Quarter: 2024Q3

REPORT INFORMATION
  Report Type: Spontaneous
  Country: GR (occurrence: GR)
  Receive Date: 20240918
  Receipt Date: 20240918
  Transmission Date: 20241017
  Serious: Yes (Other)
  Sender: AMICUS THERAPEUTICS
  Company Number: GR-AMICUS THERAPEUTICS, INC.-AMI_3370

PATIENT
  Age: 72 Year
  Sex: Male

DRUGS (1)
  1. GALAFOLD [Suspect]
     Active Substance: MIGALASTAT HYDROCHLORIDE
     Indication: Fabry^s disease
     Dosage: UNK (STARTED ABOUT 2.5 YEARS AGO)
     Route: 048
     Dates: start: 2022, end: 2024

REACTIONS (1)
  - Renal impairment [Unknown]

NARRATIVE: CASE EVENT DATE: 20240101
